FAERS Safety Report 20466881 (Version 1)
Quarter: 2022Q1

REPORT INFORMATION
  Report Type: Spontaneous
  Country: US (occurrence: US)
  Receive Date: 20220214
  Receipt Date: 20220214
  Transmission Date: 20220423
  Serious: Yes (Hospitalization, Other)
  Sender: FDA-Public Use
  Company Number: US-MLMSERVICE-20220127-3344582-1

PATIENT
  Age: 20 Day
  Sex: Male
  Weight: .75 kg

DRUGS (2)
  1. VANCOMYCIN [Suspect]
     Active Substance: VANCOMYCIN
     Indication: Sepsis
     Dosage: UNK
     Route: 065
  2. CEFEPIME [Concomitant]
     Active Substance: CEFEPIME HYDROCHLORIDE
     Indication: Pneumonia klebsiella
     Dosage: UNK
     Route: 042

REACTIONS (3)
  - Nephropathy toxic [Recovering/Resolving]
  - Acidosis [Recovering/Resolving]
  - Acute kidney injury [Recovering/Resolving]
